FAERS Safety Report 5881331-5 (Version None)
Quarter: 2008Q3

REPORT INFORMATION
  Report Type: 
  Country: None (occurrence: None)
  Receive Date: 20080911
  Receipt Date: 20080905
  Transmission Date: 20090109
  Serious: Yes (Hospitalization)
  Sender: FDA-Public Use
  Company Number: 2008BI018457

PATIENT
  Age: 64 Year
  Sex: Female

DRUGS (2)
  1. AVONEX [Suspect]
     Indication: MULTIPLE SCLEROSIS
     Dosage: 30 UG;QW,IM
     Route: 030
     Dates: start: 19970619, end: 20060120
  2. AVONEX [Suspect]
     Indication: MULTIPLE SCLEROSIS
     Dosage: 30 UG;QW,IM
     Route: 030
     Dates: start: 20070614, end: 20080720

REACTIONS (3)
  - HYPOTHALAMO-PITUITARY DISORDER [None]
  - HYPOTHERMIA [None]
  - URINARY TRACT INFECTION [None]
